FAERS Safety Report 14101578 (Version 2)
Quarter: 2018Q4

REPORT INFORMATION
  Report Type: Spontaneous
  Country: US (occurrence: US)
  Receive Date: 20171018
  Receipt Date: 20181018
  Transmission Date: 20190204
  Serious: No
  Sender: FDA-Public Use
  Company Number: US-PFIZER INC-2017447960

PATIENT
  Age: 84 Year
  Sex: Female

DRUGS (2)
  1. XELJANZ [Suspect]
     Active Substance: TOFACITINIB CITRATE
     Indication: INFLAMMATION
     Dosage: 5 MG, 2X/DAY (30-DAY SUPPLY)
     Route: 048
  2. XELJANZ [Suspect]
     Active Substance: TOFACITINIB CITRATE
     Indication: PERIPHERAL SWELLING

REACTIONS (3)
  - Drug effect incomplete [Unknown]
  - Dyspnoea [Unknown]
  - Faeces discoloured [Unknown]
